FAERS Safety Report 4950398-0 (Version None)
Quarter: 2006Q1

REPORT INFORMATION
  Report Type: 
  Country: None (occurrence: None)
  Receive Date: 20060316
  Receipt Date: 20060303
  Transmission Date: 20060701
  Serious: Yes (Life-Threatening, Hospitalization, Other)
  Sender: FDA-Public Use
  Company Number: 2006031541

PATIENT
  Age: 74 Year
  Sex: Female

DRUGS (5)
  1. ATARAX [Suspect]
     Indication: VOMITING
     Dosage: 25 MG (1 D), INTRAVENOUS
     Route: 042
     Dates: start: 20060227, end: 20060227
  2. FENTANYL [Concomitant]
  3. PREDNISOLONE [Concomitant]
  4. NAUZELIN (DOMPERIDONE) [Concomitant]
  5. PRIMPERAN TAB [Concomitant]

REACTIONS (2)
  - COMA [None]
  - CONVULSION [None]
